FAERS Safety Report 23872515 (Version 2)
Quarter: 2024Q3

REPORT INFORMATION
  Report Type: Spontaneous
  Country: BR (occurrence: BR)
  Receive Date: 20240520
  Receipt Date: 20240710
  Transmission Date: 20241017
  Serious: Yes (Other)
  Sender: BAXTER
  Company Number: BR-BAXTER-2024BAX017905

PATIENT
  Age: 20 Year
  Sex: Female

DRUGS (2)
  1. IRON [Suspect]
     Active Substance: IRON
     Indication: Mineral supplementation
     Dosage: 200 MG (2 AMPOULES) DILUTED IN 250 ML OF 0.9% SALINE SOLUTION, IN 2 HOURS, IN A SINGLE DOSE
     Route: 042
     Dates: start: 20240429, end: 20240429
  2. SODIUM CHLORIDE [Suspect]
     Active Substance: SODIUM CHLORIDE
     Indication: Medication dilution
     Dosage: 250 ML OF 0.9% SALINE SOLUTION USED TO DILUTE 200 MG (2 AMPOULES) OF SUCROFER IN 2 HOURS, IN A SINGL
     Route: 042
     Dates: start: 20240429, end: 20240429

REACTIONS (6)
  - Cyanosis [Recovered/Resolved]
  - Skin plaque [Recovered/Resolved]
  - Erythema [Recovered/Resolved]
  - Pruritus [Recovered/Resolved]
  - Exposure during pregnancy [Recovered/Resolved]
  - Product administration error [Unknown]

NARRATIVE: CASE EVENT DATE: 20240429
